FAERS Safety Report 20485850 (Version 2)
Quarter: 2022Q1

REPORT INFORMATION
  Report Type: Spontaneous
  Country: RU (occurrence: RU)
  Receive Date: 20220217
  Receipt Date: 20220304
  Transmission Date: 20220423
  Serious: No
  Sender: FDA-Public Use
  Company Number: RU-NOVARTISPH-NVSC2022RU036861

PATIENT

DRUGS (1)
  1. CANAKINUMAB [Suspect]
     Active Substance: CANAKINUMAB
     Indication: Still^s disease
     Dosage: 4 MG/KG, QW4 (MAXIMAL SINGLE DOSE WAS 300 MG)
     Route: 058

REACTIONS (1)
  - Gastroenteritis [Unknown]
